FAERS Safety Report 18651679 (Version 2)
Quarter: 2021Q1

REPORT INFORMATION
  Report Type: Report from Study
  Country: None (occurrence: BE)
  Receive Date: 20201222
  Receipt Date: 20210105
  Transmission Date: 20210419
  Serious: Yes (Death, Hospitalization, Other)
  Sender: FDA-Public Use
  Company Number: BE-ABBVIE-20K-013-3233198-00

PATIENT
  Age: 81 Year
  Sex: Female
  Weight: 40 kg

DRUGS (13)
  1. DUODOPA [Suspect]
     Active Substance: CARBIDOPA\LEVODOPA
     Dosage: UNKNOWN DOSAGES
     Route: 050
     Dates: end: 20200106
  2. NEXIAM [Concomitant]
     Active Substance: ESOMEPRAZOLE
     Indication: PRODUCT USED FOR UNKNOWN INDICATION
  3. MOVICOL [Concomitant]
     Active Substance: POLYETHYLENE GLYCOL 3350\POTASSIUM CHLORIDE\SODIUM BICARBONATE\SODIUM CHLORIDE
     Indication: PRODUCT USED FOR UNKNOWN INDICATION
  4. STALEVO 100 [Concomitant]
     Dosage: FORM STRENGTH: 100MG/25MG/200MG; AT NIGHT IF NECESSARY; RESCUE MEDICATION
  5. DUODOPA [Suspect]
     Active Substance: CARBIDOPA\LEVODOPA
     Indication: PARKINSON^S DISEASE
     Dosage: MD=4ML, CD=1.9ML/HR DURING 16HRS, ED=1.1ML, ND=1.6ML/HR DURING 8HRS
     Route: 050
     Dates: start: 20160530, end: 20160603
  6. DUODOPA [Suspect]
     Active Substance: CARBIDOPA\LEVODOPA
     Dosage: DOSES CONTINUOUSLY MONITORED AND ADAPTED
     Route: 050
     Dates: start: 20160603, end: 20180628
  7. DUODOPA [Suspect]
     Active Substance: CARBIDOPA\LEVODOPA
     Dosage: MD=3ML, CD=1.6ML/HR DURING 16HRS, ED=0.8ML, ND=1.1ML/HR DURING 8HRS
     Route: 050
     Dates: start: 20180628
  8. STALEVO 100 [Concomitant]
     Indication: PARKINSON^S DISEASE
     Dosage: FORM STRENGTH: 100MG/25MG/200MG(PRIOR TO DUODOPA THERAPY)
     Route: 048
  9. DUODOPA [Suspect]
     Active Substance: CARBIDOPA\LEVODOPA
     Dosage: MD, ED AND ND UNKNOWN; CD=1.8ML/HR DURING 16HRS
     Route: 050
     Dates: start: 20200106, end: 20200907
  10. DUODOPA [Suspect]
     Active Substance: CARBIDOPA\LEVODOPA
     Dosage: MD: 2.0 ML, CD: 1.9 ML/HR. DURING 16HRS, ED: 1.1 ML, ND: 1.1 ML/HR. DURING 8HRS
     Route: 050
     Dates: start: 20200907
  11. STEOVIT D3 [Concomitant]
     Active Substance: CALCIUM CARBONATE\CHOLECALCIFEROL
     Indication: PRODUCT USED FOR UNKNOWN INDICATION
  12. OMEPRAZOL [Concomitant]
     Active Substance: OMEPRAZOLE
     Indication: PRODUCT USED FOR UNKNOWN INDICATION
  13. STALEVO 150 [Concomitant]
     Indication: PARKINSON^S DISEASE
     Dosage: FORM STRENGTH: 150MG/37.5MG/200MG
     Route: 048

REACTIONS (11)
  - Orthostatic intolerance [Unknown]
  - Vertigo [Unknown]
  - Coma [Unknown]
  - Dyskinesia [Unknown]
  - Skin atrophy [Unknown]
  - Freezing phenomenon [Unknown]
  - Death [Fatal]
  - Dizziness [Unknown]
  - Hypotension [Unknown]
  - Myocardial infarction [Unknown]
  - On and off phenomenon [Unknown]
